FAERS Safety Report 4490828-4 (Version None)
Quarter: 2004Q4

REPORT INFORMATION
  Report Type: 
  Country: None (occurrence: None)
  Receive Date: 20041027
  Receipt Date: 20041019
  Transmission Date: 20050328
  Serious: Yes (Hospitalization)
  Sender: FDA-Public Use
  Company Number: STA-AE-04-MTX-504

PATIENT
  Age: 73 Year

DRUGS (4)
  1. METHOTREXATE [Suspect]
     Indication: RHEUMATOID ARTHRITIS
     Dosage: 5 MG 1 X PER 1 WK, ORAL
     Route: 048
     Dates: start: 20021114, end: 20040421
  2. METHOTREXATE [Suspect]
     Indication: RHEUMATOID ARTHRITIS
     Dosage: 5 MG 1 X PER 1 WK, ORAL
     Route: 048
     Dates: start: 20040422
  3. PREDNISONE [Suspect]
     Indication: RHEUMATOID ARTHRITIS
     Dosage: 20 MG 1 X PER 1 DAY, ORAL
     Route: 048
  4. REMICADE [Suspect]
     Indication: RHEUMATOID ARTHRITIS
     Dosage: 200 MG 1 X PER 8 WK, INTRAVENOUS
     Route: 042
     Dates: start: 20021114, end: 20040625

REACTIONS (3)
  - FISTULA [None]
  - PURULENT DISCHARGE [None]
  - SEPTIC ARTHRITIS STAPHYLOCOCCAL [None]
